FAERS Safety Report 21610419 (Version 1)
Quarter: 2022Q4

REPORT INFORMATION
  Report Type: Spontaneous
  Country: US (occurrence: US)
  Receive Date: 20221117
  Receipt Date: 20221117
  Transmission Date: 20230112
  Serious: Yes (Other)
  Sender: FDA-Public Use
  Company Number: US-BioHaven Pharmaceuticals-2022BHV003103

PATIENT
  Age: 51 Year
  Sex: Male

DRUGS (2)
  1. NURTEC ODT [Suspect]
     Active Substance: RIMEGEPANT SULFATE
     Indication: Migraine
     Dosage: PATIENT WAS ADVISED TO DISCONTINUE NSAID^S AND NURTEC WHILE INVESTIGATING HIS ALLERGIC REACTIONS
     Route: 065
  2. UNSPECIFIED INGREDIENT [Concomitant]
     Active Substance: UNSPECIFIED INGREDIENT
     Indication: Product used for unknown indication
     Dosage: PATIENT WAS ADVISED TO DISCONTINUE NSAID^S AND NURTEC WHILE INVESTIGATING HIS ALLERGIC REACTIONS
     Route: 065

REACTIONS (7)
  - Angioedema [Unknown]
  - Migraine [Unknown]
  - Hypersensitivity [Unknown]
  - Swelling face [Unknown]
  - Chest discomfort [Unknown]
  - Urticaria [Unknown]
  - Dyspepsia [Unknown]
